FAERS Safety Report 15029980 (Version 2)
Quarter: 2018Q3

REPORT INFORMATION
  Report Type: Report from Study
  Country: None (occurrence: US)
  Receive Date: 20180619
  Receipt Date: 20180705
  Transmission Date: 20181010
  Serious: Yes (Hospitalization, Other)
  Sender: FDA-Public Use
  Company Number: US-ABBVIE-18P-163-2391377-00

PATIENT
  Age: 64 Year
  Sex: Male

DRUGS (2)
  1. CASODEX [Suspect]
     Active Substance: BICALUTAMIDE
     Indication: PRODUCT USED FOR UNKNOWN INDICATION
     Route: 065
  2. LUPRON DEPOT [Suspect]
     Active Substance: LEUPROLIDE ACETATE
     Indication: PRODUCT USED FOR UNKNOWN INDICATION
     Route: 050

REACTIONS (9)
  - Urine flow decreased [Unknown]
  - Adhesion [Unknown]
  - Pneumonia [Unknown]
  - Prostate cancer [Unknown]
  - Sepsis [Unknown]
  - Respiratory failure [Unknown]
  - Prostatic specific antigen increased [Unknown]
  - Adhesion [Unknown]
  - Reflux nephropathy [Unknown]

NARRATIVE: CASE EVENT DATE: 20171205
